FAERS Safety Report 15618779 (Version 1)
Quarter: 2018Q4

REPORT INFORMATION
  Report Type: Spontaneous
  Country: US (occurrence: US)
  Receive Date: 20181114
  Receipt Date: 20181114
  Transmission Date: 20190205
  Serious: Yes (Other)
  Sender: FDA-Public Use
  Company Number: None

PATIENT
  Age: 70 Year
  Sex: Female
  Weight: 85.05 kg

DRUGS (6)
  1. LISINOPRIL. [Concomitant]
     Active Substance: LISINOPRIL
  2. DOXYCYCLINEHYC [Suspect]
     Active Substance: DOXYCYCLINE HYCLATE
     Indication: SKIN IRRITATION
     Dosage: ?          QUANTITY:1 CAPSULE(S);?
     Route: 048
     Dates: start: 20181105, end: 20181113
  3. DOXYCYCLINEHYC [Suspect]
     Active Substance: DOXYCYCLINE HYCLATE
     Indication: RASH
     Dosage: ?          QUANTITY:1 CAPSULE(S);?
     Route: 048
     Dates: start: 20181105, end: 20181113
  4. SIMVASTATIN. [Concomitant]
     Active Substance: SIMVASTATIN
  5. METFORMIN [Concomitant]
     Active Substance: METFORMIN HYDROCHLORIDE
  6. DOXYCYCLINEHYC [Suspect]
     Active Substance: DOXYCYCLINE HYCLATE
     Indication: ACNE
     Dosage: ?          QUANTITY:1 CAPSULE(S);?
     Route: 048
     Dates: start: 20181105, end: 20181113

REACTIONS (8)
  - Nausea [None]
  - Asthenia [None]
  - Abdominal pain upper [None]
  - Muscle twitching [None]
  - Dizziness [None]
  - Drug intolerance [None]
  - Vomiting [None]
  - Blood pressure decreased [None]

NARRATIVE: CASE EVENT DATE: 20181112
